FAERS Safety Report 14889244 (Version 1)
Quarter: 2018Q2

REPORT INFORMATION
  Report Type: Spontaneous
  Country: CN (occurrence: CN)
  Receive Date: 20180514
  Receipt Date: 20180514
  Transmission Date: 20180711
  Serious: Yes (Death, Other)
  Sender: FDA-Public Use
  Company Number: CN-DENTSPLY-2018SCDP000096

PATIENT
  Age: 43 Year
  Sex: Female

DRUGS (4)
  1. LIDOCAINE HCL [Suspect]
     Active Substance: LIDOCAINE HYDROCHLORIDE
     Indication: MYALGIA
  2. BOTOX [Suspect]
     Active Substance: ONABOTULINUMTOXINA
     Indication: NECK PAIN
     Dosage: 100 UNITS
  3. BOTOX [Suspect]
     Active Substance: ONABOTULINUMTOXINA
     Indication: BACK PAIN
  4. LIDOCAINE HCL [Suspect]
     Active Substance: LIDOCAINE HYDROCHLORIDE
     Indication: MUSCLE SPASMS
     Dosage: 50 MG, UNK

REACTIONS (8)
  - Anaphylactic reaction [Fatal]
  - Loss of consciousness [Unknown]
  - Seizure [Unknown]
  - Dizziness [Unknown]
  - Ventricular fibrillation [Unknown]
  - Hemiparesis [Unknown]
  - Cardio-respiratory arrest [Fatal]
  - Anxiety [Unknown]
